FAERS Safety Report 19738534 (Version 1)
Quarter: 2021Q3

REPORT INFORMATION
  Report Type: Spontaneous
  Country: US (occurrence: US)
  Receive Date: 20210820
  Receipt Date: 20210820
  Transmission Date: 20211014
  Serious: No
  Sender: FDA-Public Use
  Company Number: None

PATIENT
  Age: 44 Year
  Sex: Female

DRUGS (1)
  1. VUMERITY [Suspect]
     Active Substance: DIROXIMEL FUMARATE
     Indication: MULTIPLE SCLEROSIS
     Route: 048
     Dates: start: 20210507

REACTIONS (7)
  - Frequent bowel movements [None]
  - Flushing [None]
  - Gait disturbance [None]
  - Drug ineffective [None]
  - Depression [None]
  - Pollakiuria [None]
  - Anxiety [None]

NARRATIVE: CASE EVENT DATE: 202105
